FAERS Safety Report 12965874 (Version 1)
Quarter: 2016Q4

REPORT INFORMATION
  Report Type: Report from Study
  Country: US (occurrence: US)
  Receive Date: 20161122
  Receipt Date: 20161122
  Transmission Date: 20170207
  Serious: Yes (Hospitalization)
  Sender: FDA-Public Use
  Company Number: US-MALLINCKRODT-T201605174

PATIENT
  Age: 68 Year
  Sex: Female

DRUGS (34)
  1. IBUPROFEN. [Concomitant]
     Active Substance: IBUPROFEN
     Dosage: 200 MG TAB
  2. TRESIBA [Concomitant]
     Active Substance: INSULIN DEGLUDEC
     Dosage: 100 UNIT
  3. MYCOPHENOLATE [Concomitant]
     Active Substance: MYCOPHENOLIC ACID
     Dosage: 250 MG CAP
  4. HYDROXYCHLOROQUINE [Concomitant]
     Active Substance: HYDROXYCHLOROQUINE
     Dosage: 200 MG TAB
  5. ATORVASTATIN [Concomitant]
     Active Substance: ATORVASTATIN
  6. FLUTICASONE [Concomitant]
     Active Substance: FLUTICASONE\FLUTICASONE PROPIONATE
     Dosage: 50 MCG
  7. METHOTREXATE. [Concomitant]
     Active Substance: METHOTREXATE
     Dosage: 2.5 MG
  8. AMITIZA [Concomitant]
     Active Substance: LUBIPROSTONE
     Dosage: 24 MCG CAP
  9. REPOSITORY CORTICOTROPIN INJECTION [Suspect]
     Active Substance: CORTICOTROPIN
     Indication: SARCOIDOSIS
     Dosage: 80 UNITS TWICE WEEKLY
     Route: 058
     Dates: start: 20160310
  10. REPOSITORY CORTICOTROPIN INJECTION [Suspect]
     Active Substance: CORTICOTROPIN
     Indication: RESPIRATORY DISORDER
     Dosage: 80U/ML, TWICE WEEKLY (TUE + FRI)
     Route: 058
     Dates: start: 20160311
  11. JANUMET [Concomitant]
     Active Substance: METFORMIN HYDROCHLORIDE\SITAGLIPTIN PHOSPHATE
     Dosage: 50-500 MG
  12. NEXIUM [Concomitant]
     Active Substance: ESOMEPRAZOLE MAGNESIUM
  13. POTASSIUM CHLORIDE. [Concomitant]
     Active Substance: POTASSIUM CHLORIDE
  14. FLUCONAZOLE. [Concomitant]
     Active Substance: FLUCONAZOLE
     Dosage: 100 MG TAB
  15. TRIAMCINOLON [Concomitant]
  16. MYRBETRIQ [Concomitant]
     Active Substance: MIRABEGRON
     Dosage: 25 MG TAB
  17. XIGDUO XR [Concomitant]
     Active Substance: DAPAGLIFLOZIN PROPANEDIOL\METFORMIN HYDROCHLORIDE
     Dosage: 5-500 MG TAB
  18. METHENAMINE HIPPURATE. [Concomitant]
     Active Substance: METHENAMINE HIPPURATE
     Dosage: TAB 1 GM
  19. HYDROCHOL [Concomitant]
     Dosage: 50 MG TAB
  20. GRALISE [Concomitant]
     Active Substance: GABAPENTIN
     Dosage: 600 MG
  21. SYNTHROID [Concomitant]
     Active Substance: LEVOTHYROXINE SODIUM
     Dosage: 125 MCG TAB
  22. NITROFURANTIN [Concomitant]
     Active Substance: NITROFURANTOIN
     Dosage: 100 MG CAP
  23. ESCITALOPRAM [Concomitant]
     Active Substance: ESCITALOPRAM OXALATE
     Dosage: 10 MG TAB
  24. ADVAIR HFA [Concomitant]
     Active Substance: FLUTICASONE PROPIONATE\SALMETEROL XINAFOATE
     Dosage: 100/50
  25. FOLIC ACID. [Concomitant]
     Active Substance: FOLIC ACID
     Dosage: 1 MG TAB
  26. CELECOXIB. [Concomitant]
     Active Substance: CELECOXIB
     Dosage: 200 MG CAP
  27. PROAIR HFA [Concomitant]
     Active Substance: ALBUTEROL SULFATE
  28. METOPROLOL. [Concomitant]
     Active Substance: METOPROLOL
  29. LEVOFLOXACIN. [Concomitant]
     Active Substance: LEVOFLOXACIN
     Dosage: 750 MG
  30. METFORMIN [Concomitant]
     Active Substance: METFORMIN HYDROCHLORIDE
     Dosage: TAB 500 MG
  31. SUPREP BOWEL PREP [Concomitant]
     Active Substance: MAGNESIUM SULFATE\POTASSIUM SULFATE\SODIUM SULFATE
  32. NOVOLOG [Concomitant]
     Active Substance: INSULIN ASPART
  33. METRONIDAZOL [Concomitant]
     Active Substance: METRONIDAZOLE
  34. CHLORDIAZEPOX [Concomitant]
     Dosage: 5 MG CAP

REACTIONS (3)
  - Sarcoidosis [Recovering/Resolving]
  - Injection site pain [Not Recovered/Not Resolved]
  - Faecaloma [Recovering/Resolving]

NARRATIVE: CASE EVENT DATE: 2016
